FAERS Safety Report 8345178-2 (Version None)
Quarter: 2012Q2

REPORT INFORMATION
  Report Type: 
  Country: None (occurrence: None)
  Receive Date: 20120504
  Receipt Date: 20120423
  Transmission Date: 20120825
  Serious: Yes (Hospitalization)
  Sender: FDA-Public Use
  Company Number: 1274369

PATIENT
  Age: 36 Year
  Sex: Male

DRUGS (2)
  1. KETAMINE HCL [Suspect]
     Indication: COMPLEX REGIONAL PAIN SYNDROME
     Dosage: 700 MG/H, UNKNOWN, INTRAVENOUS DRIP
     Route: 041
  2. MIDAZOLAM [Concomitant]

REACTIONS (12)
  - ANXIETY [None]
  - TEARFULNESS [None]
  - AFFECT LABILITY [None]
  - INSOMNIA [None]
  - FEAR [None]
  - MEMORY IMPAIRMENT [None]
  - PSYCHOTIC DISORDER [None]
  - EXAGGERATED STARTLE RESPONSE [None]
  - MENTAL STATUS CHANGES [None]
  - OFF LABEL USE [None]
  - COGNITIVE DISORDER [None]
  - HALLUCINATION, VISUAL [None]
